FAERS Safety Report 23791580 (Version 1)
Quarter: 2024Q2

REPORT INFORMATION
  Report Type: Spontaneous
  Country: RO (occurrence: RO)
  Receive Date: 20240429
  Receipt Date: 20240429
  Transmission Date: 20240716
  Serious: Yes (Other)
  Sender: FDA-Public Use
  Company Number: RO-BRISTOL-MYERS SQUIBB COMPANY-2024-063823

PATIENT
  Age: 51 Year
  Sex: Female

DRUGS (3)
  1. NIVOLUMAB [Suspect]
     Active Substance: NIVOLUMAB
     Indication: Acral lentiginous melanoma stage IV
     Dosage: DOSE : NIVO 1 MG/KG,+ IPI 3 MG/KG;     FREQ : UNAVAILABLE
  2. NIVOLUMAB [Suspect]
     Active Substance: NIVOLUMAB
  3. IPILIMUMAB [Suspect]
     Active Substance: IPILIMUMAB
     Indication: Acral lentiginous melanoma stage IV

REACTIONS (5)
  - Asthenia [Unknown]
  - Hypothyroidism [Unknown]
  - Hepatotoxicity [Unknown]
  - Rheumatoid arthritis [Unknown]
  - Malignant neoplasm progression [Unknown]
